FAERS Safety Report 23337012 (Version 1)
Quarter: 2023Q4

REPORT INFORMATION
  Report Type: Report from Study
  Country: CA (occurrence: CA)
  Receive Date: 20231226
  Receipt Date: 20231226
  Transmission Date: 20240110
  Serious: Yes (Death, Other)
  Sender: FDA-Public Use
  Company Number: None

PATIENT
  Age: 81 Year
  Sex: Female

DRUGS (20)
  1. METHOTREXATE [Suspect]
     Active Substance: METHOTREXATE
     Indication: Rheumatoid arthritis
     Dosage: 1 EVERY 1 WEEKS
     Route: 065
  2. LENALIDOMIDE [Suspect]
     Active Substance: LENALIDOMIDE
     Indication: Plasma cell myeloma refractory
     Dosage: 1 EVERY 1 DAYS
     Route: 048
  3. ACYCLOVIR [Concomitant]
     Active Substance: ACYCLOVIR
  4. ASPIRIN [Concomitant]
     Active Substance: ASPIRIN
  5. BORTEZOMIB [Concomitant]
     Active Substance: BORTEZOMIB
  6. BUPROPION [Concomitant]
     Active Substance: BUPROPION
  7. CALCIUM+VIT D [Concomitant]
     Route: 048
  8. CYCLOPHOSPHAMIDE [Concomitant]
     Active Substance: CYCLOPHOSPHAMIDE
  9. DARATUMUMAB [Concomitant]
     Active Substance: DARATUMUMAB
     Indication: Plasma cell myeloma refractory
     Route: 042
  10. DEXAMETHASONE [Concomitant]
     Active Substance: DEXAMETHASONE
     Indication: Plasma cell myeloma refractory
     Dosage: CYCLICAL
  11. FLUVOXAMINE [Concomitant]
     Active Substance: FLUVOXAMINE
  12. FOLIC ACID [Suspect]
     Active Substance: FOLIC ACID
     Indication: Rheumatoid arthritis
     Route: 065
  13. MELPHALAN [Concomitant]
     Active Substance: MELPHALAN
  14. MORPHINE [Concomitant]
     Active Substance: MORPHINE
     Indication: Pain in extremity
     Route: 065
  15. PANTOPRAZOLE SODIUM [Concomitant]
     Active Substance: PANTOPRAZOLE SODIUM
  16. PREDNISONE [Concomitant]
     Active Substance: PREDNISONE
  17. PREGABALIN [Concomitant]
     Active Substance: PREGABALIN
  18. SENNA [Concomitant]
     Active Substance: SENNA LEAF\SENNOSIDES\SENNOSIDES A AND B
  19. ZOLEDRONIC ACID [Concomitant]
     Active Substance: ZOLEDRONIC ACID
     Dosage: 1 EVERY 1 MONTHS
  20. ZOPICLONE [Concomitant]
     Active Substance: ZOPICLONE

REACTIONS (4)
  - Condition aggravated [Fatal]
  - General physical health deterioration [Fatal]
  - Plasma cell myeloma [Fatal]
  - Treatment noncompliance [Fatal]
